FAERS Safety Report 24368131 (Version 3)
Quarter: 2024Q4

REPORT INFORMATION
  Report Type: Spontaneous
  Country: US (occurrence: US)
  Receive Date: 20240926
  Receipt Date: 20241105
  Transmission Date: 20250115
  Serious: Yes (Death, Life-Threatening, Other)
  Sender: PFIZER
  Company Number: US-PFIZER INC-PV202400124184

PATIENT
  Age: 48 Year
  Sex: Male

DRUGS (4)
  1. DEXMEDETOMIDINE HYDROCHLORIDE [Interacting]
     Active Substance: DEXMEDETOMIDINE HYDROCHLORIDE
     Indication: Sedative therapy
     Dosage: UNK
  2. DEXMEDETOMIDINE HYDROCHLORIDE [Interacting]
     Active Substance: DEXMEDETOMIDINE HYDROCHLORIDE
     Indication: Alcohol withdrawal syndrome
  3. OCTREOTIDE [Interacting]
     Active Substance: OCTREOTIDE
     Indication: Blood loss anaemia
     Dosage: UNK
  4. PROPOFOL [Concomitant]
     Active Substance: PROPOFOL
     Indication: Sedative therapy
     Dosage: UNK

REACTIONS (5)
  - Sinus arrest [Fatal]
  - Syncope [Unknown]
  - Seizure like phenomena [Unknown]
  - Unresponsive to stimuli [Unknown]
  - Drug interaction [Unknown]
